FAERS Safety Report 5571999-5 (Version None)
Quarter: 2007Q4

REPORT INFORMATION
  Report Type: 
  Country: None (occurrence: None)
  Receive Date: 20071221
  Receipt Date: 20071218
  Transmission Date: 20080405
  Serious: Yes (Other)
  Sender: FDA-Public Use
  Company Number: GB-BOEHRINGER INGELHEIM PHARMACEUTICALS, INC.-2007-UK-04116UK

PATIENT
  Age: 72 Year
  Sex: Female
  Weight: 51.4 kg

DRUGS (7)
  1. PERSANTIN [Suspect]
     Indication: TRANSIENT ISCHAEMIC ATTACK
     Route: 048
     Dates: start: 20071121, end: 20071121
  2. BENDROFLUAZIDE [Concomitant]
     Indication: BLOOD PRESSURE INCREASED
     Route: 048
     Dates: start: 20071122
  3. CANDESARTAN CILEXETIL [Concomitant]
     Indication: BLOOD PRESSURE INCREASED
     Route: 048
     Dates: start: 20071121
  4. NOLVADEX [Concomitant]
     Indication: BREAST CANCER
     Dosage: 20MG 2X DAILY
     Route: 048
     Dates: start: 20071121
  5. OMEPRAZOLE [Concomitant]
     Route: 048
     Dates: start: 19850101
  6. SIMVASTATIN [Concomitant]
     Indication: BLOOD CHOLESTEROL INCREASED
  7. SUMATRIPTAN SUCCINATE [Concomitant]
     Indication: MIGRAINE

REACTIONS (6)
  - BALANCE DISORDER [None]
  - HEADACHE [None]
  - MIGRAINE [None]
  - NAUSEA [None]
  - VERTIGO [None]
  - VOMITING [None]
